FAERS Safety Report 25009057 (Version 1)
Quarter: 2025Q1

REPORT INFORMATION
  Report Type: Spontaneous
  Country: US (occurrence: US)
  Receive Date: 20250225
  Receipt Date: 20250225
  Transmission Date: 20250409
  Serious: Yes (Hospitalization)
  Sender: SANDOZ
  Company Number: US-SANDOZ-SDZ2025US011530

PATIENT
  Sex: Male

DRUGS (10)
  1. AZTREONAM LYSINE [Suspect]
     Active Substance: AZTREONAM LYSINE
     Indication: Cystic fibrosis
     Dosage: 75 MG, TID
     Route: 055
     Dates: start: 20221005
  2. AZTREONAM LYSINE [Suspect]
     Active Substance: AZTREONAM LYSINE
     Indication: Cystic fibrosis lung
  3. COLISTIMETHATE SODIUM [Suspect]
     Active Substance: COLISTIMETHATE SODIUM
     Indication: Cystic fibrosis lung
     Dosage: 150 MG, TID
     Route: 055
     Dates: start: 20190920
  4. COLISTIMETHATE SODIUM [Suspect]
     Active Substance: COLISTIMETHATE SODIUM
     Indication: Cystic fibrosis
  5. PULMOZYME [Suspect]
     Active Substance: DORNASE ALFA
     Indication: Cystic fibrosis lung
     Dosage: 1 MG, QD
     Route: 055
     Dates: start: 20190724
  6. PULMOZYME [Suspect]
     Active Substance: DORNASE ALFA
     Indication: Cystic fibrosis
  7. TOBRAMYCIN [Suspect]
     Active Substance: TOBRAMYCIN
     Indication: Cystic fibrosis lung
     Dosage: 300 MG, BID
     Route: 055
     Dates: start: 20190920
  8. TOBRAMYCIN [Suspect]
     Active Substance: TOBRAMYCIN
     Indication: Cystic fibrosis
  9. VANCOMYCIN [Suspect]
     Active Substance: VANCOMYCIN
     Indication: Cystic fibrosis
     Dosage: 500 MG, BID
     Route: 055
     Dates: start: 20190920
  10. VANCOMYCIN [Suspect]
     Active Substance: VANCOMYCIN
     Indication: Cystic fibrosis lung

REACTIONS (3)
  - Toe amputation [Unknown]
  - COVID-19 [Unknown]
  - Influenza [Unknown]
